FAERS Safety Report 7272855-7 (Version None)
Quarter: 2010Q4

REPORT INFORMATION
  Report Type: 
  Country: None (occurrence: None)
  Receive Date: 20101201
  Receipt Date: 20100330
  Transmission Date: 20110411
  Serious: Yes (Hospitalization)
  Sender: FDA-Public Use
  Company Number: 303830

PATIENT
  Age: 54 Year
  Sex: Female
  Weight: 59 kg

DRUGS (3)
  1. NOVOLOG [Suspect]
     Indication: DIABETES MELLITUS
     Dosage: SLIDING SCALE, 10-14 IU, SUBCUTANEOUS
     Route: 058
  2. LANTUS [Concomitant]
  3. IMMUNOSUPPRESSANTS [Concomitant]

REACTIONS (1)
  - BLOOD GLUCOSE INCREASED [None]
